FAERS Safety Report 20906946 (Version 1)
Quarter: 2022Q2

REPORT INFORMATION
  Report Type: Report from Study
  Country: CN (occurrence: None)
  Receive Date: 20220602
  Receipt Date: 20220602
  Transmission Date: 20220721
  Serious: Yes (Death, Hospitalization)
  Sender: FDA-Public Use
  Company Number: CN-ROCHE-3107598

PATIENT
  Age: 63 Year
  Sex: Male
  Weight: 82 kg

DRUGS (7)
  1. ATEZOLIZUMAB [Suspect]
     Active Substance: ATEZOLIZUMAB
     Indication: Hepatocellular carcinoma
     Route: 041
     Dates: start: 20220121
  2. CABOZANTINIB [Suspect]
     Active Substance: CABOZANTINIB
     Indication: Hepatocellular carcinoma
     Dosage: 27/FEB/2022 - MOST RECENT DOSE PRIOR TO AE
     Route: 048
     Dates: start: 20220121, end: 20220228
  3. METOCLOPRAMIDE [Concomitant]
     Active Substance: METOCLOPRAMIDE
  4. URSODIOL [Concomitant]
     Active Substance: URSODIOL
  5. LAMIVUDINE [Concomitant]
     Active Substance: LAMIVUDINE
  6. HERBALS\DIAMMONIUM GLYCYRRHIZINATE [Concomitant]
     Active Substance: HERBALS\DIAMMONIUM GLYCYRRHIZINATE
  7. GLUTATHIONE REDUCED [Concomitant]

REACTIONS (2)
  - Drug-induced liver injury [Fatal]
  - Ascites [Fatal]

NARRATIVE: CASE EVENT DATE: 20220310
